FAERS Safety Report 11002794 (Version 4)
Quarter: 2015Q3

REPORT INFORMATION
  Report Type: Spontaneous
  Country: US (occurrence: US)
  Receive Date: 20150408
  Receipt Date: 20150727
  Transmission Date: 20151125
  Serious: Yes (Hospitalization, Other)
  Sender: FDA-Public Use
  Company Number: US-JNJFOC-20150401243

PATIENT
  Age: 68 Year
  Sex: Male
  Weight: 65.77 kg

DRUGS (4)
  1. LEVEMIR [Suspect]
     Active Substance: INSULIN DETEMIR
     Indication: TYPE 2 DIABETES MELLITUS
     Route: 058
     Dates: end: 20141028
  2. INVOKANA [Suspect]
     Active Substance: CANAGLIFLOZIN
     Indication: TYPE 2 DIABETES MELLITUS
     Route: 048
     Dates: start: 20141103, end: 20141111
  3. METFORMIN [Concomitant]
     Active Substance: METFORMIN HYDROCHLORIDE
     Dosage: 1000 (UNITS NOT PROVIDED)
     Route: 065
  4. INVOKANA [Suspect]
     Active Substance: CANAGLIFLOZIN
     Indication: TYPE 2 DIABETES MELLITUS
     Route: 048
     Dates: start: 20141028, end: 20141102

REACTIONS (9)
  - Blood glucose increased [Not Recovered/Not Resolved]
  - Loss of consciousness [Recovering/Resolving]
  - Headache [Recovering/Resolving]
  - Blood count abnormal [Unknown]
  - Weight decreased [Unknown]
  - Abnormal behaviour [Recovering/Resolving]
  - Vomiting [Recovering/Resolving]
  - Diabetic ketoacidosis [Unknown]
  - Blood potassium increased [Unknown]

NARRATIVE: CASE EVENT DATE: 20141104
